FAERS Safety Report 12652237 (Version 4)
Quarter: 2016Q3

REPORT INFORMATION
  Report Type: Spontaneous
  Country: US (occurrence: US)
  Receive Date: 20160815
  Receipt Date: 20160916
  Transmission Date: 20161109
  Serious: No
  Sender: FDA-Public Use
  Company Number: US-GILEAD-2016-0228145

PATIENT
  Sex: Female

DRUGS (1)
  1. HARVONI [Suspect]
     Active Substance: LEDIPASVIR\SOFOSBUVIR
     Indication: PRODUCT USED FOR UNKNOWN INDICATION
     Dosage: UNK
     Route: 065
     Dates: start: 201511, end: 201601

REACTIONS (8)
  - Photosensitivity reaction [Not Recovered/Not Resolved]
  - Vitiligo [Not Recovered/Not Resolved]
  - Pigmentation disorder [Not Recovered/Not Resolved]
  - Dry skin [Not Recovered/Not Resolved]
  - Pruritus [Not Recovered/Not Resolved]
  - Hypersensitivity [Unknown]
  - Rash [Not Recovered/Not Resolved]
  - Skin exfoliation [Not Recovered/Not Resolved]
